FAERS Safety Report 11048550 (Version 1)
Quarter: 2015Q2

REPORT INFORMATION
  Report Type: Spontaneous
  Country: US (occurrence: US)
  Receive Date: 20150420
  Receipt Date: 20150420
  Transmission Date: 20150821
  Serious: Yes (Hospitalization)
  Sender: FDA-Public Use
  Company Number: PHEH2015US006561

PATIENT
  Age: 47 Year
  Sex: Female

DRUGS (1)
  1. SANDOSTATIN LAR DEPOT [Suspect]
     Active Substance: OCTREOTIDE ACETATE
     Indication: PRODUCT USED FOR UNKNOWN INDICATION
     Dosage: UNK UKN, EVERY 6 WEEKS
     Route: 065

REACTIONS (4)
  - Abdominal pain upper [Unknown]
  - Diarrhoea haemorrhagic [Unknown]
  - Diarrhoea [Unknown]
  - Colitis ischaemic [Unknown]

NARRATIVE: CASE EVENT DATE: 20150324
